FAERS Safety Report 15239299 (Version 1)
Quarter: 2018Q3

REPORT INFORMATION
  Report Type: Spontaneous
  Country: TW (occurrence: TW)
  Receive Date: 20180803
  Receipt Date: 20180803
  Transmission Date: 20181010
  Serious: Yes (Hospitalization)
  Sender: FDA-Public Use
  Company Number: TW-NOVAST LABORATORIES, LTD-TW-2018NOV000279

PATIENT
  Age: 51 Year
  Sex: Female

DRUGS (5)
  1. VALPROIC ACID. [Concomitant]
     Active Substance: VALPROIC ACID
     Indication: PSYCHOTIC SYMPTOM
  2. QUETIAPINE FUMARATE. [Suspect]
     Active Substance: QUETIAPINE FUMARATE
     Indication: BIPOLAR I DISORDER
     Dosage: 400 MG, QD
     Dates: start: 2016, end: 2016
  3. QUETIAPINE FUMARATE. [Suspect]
     Active Substance: QUETIAPINE FUMARATE
     Indication: PSYCHOTIC SYMPTOM
  4. QUETIAPINE FUMARATE. [Suspect]
     Active Substance: QUETIAPINE FUMARATE
     Indication: MANIA
     Dosage: 200 MG, QD
     Dates: start: 2016, end: 2016
  5. VALPROIC ACID. [Concomitant]
     Active Substance: VALPROIC ACID
     Indication: MANIA
     Dosage: 1000 MG, QD
     Dates: start: 2016

REACTIONS (2)
  - Hypothyroidism [Recovering/Resolving]
  - Ileus paralytic [Recovered/Resolved]

NARRATIVE: CASE EVENT DATE: 2016
